FAERS Safety Report 8182103-1 (Version None)
Quarter: 2012Q1

REPORT INFORMATION
  Report Type: 
  Country: None (occurrence: None)
  Receive Date: 20120302
  Receipt Date: 20120223
  Transmission Date: 20120608
  Serious: Yes (Hospitalization, Other)
  Sender: FDA-Public Use
  Company Number: PHHY2012CO016380

PATIENT
  Sex: Female

DRUGS (7)
  1. LOSARTAN POTASSIUM [Concomitant]
     Dosage: 50 MG, BID
  2. ZOLEDRONOC ACID [Suspect]
     Indication: OSTEOPOROSIS
     Dosage: 5 MG, PER YEAR
     Route: 042
     Dates: start: 20101201
  3. AMLODIPINE [Concomitant]
  4. LOVASTATIN [Concomitant]
  5. ASPIRIN [Concomitant]
  6. ISOSORBIDE DINITRATE [Concomitant]
  7. CLOPIDOGREL [Concomitant]

REACTIONS (3)
  - INFECTION [None]
  - FEMUR FRACTURE [None]
  - MYOCARDIAL INFARCTION [None]
